FAERS Safety Report 21527513 (Version 1)
Quarter: 2022Q4

REPORT INFORMATION
  Report Type: Spontaneous
  Country: FR (occurrence: FR)
  Receive Date: 20221031
  Receipt Date: 20221031
  Transmission Date: 20230112
  Serious: Yes (Life-Threatening, Hospitalization, Other)
  Sender: FDA-Public Use
  Company Number: FR-MLMSERVICE-20221017-3858827-1

PATIENT
  Age: 42 Year
  Sex: Male

DRUGS (1)
  1. ALLOPURINOL [Suspect]
     Active Substance: ALLOPURINOL
     Indication: Product used for unknown indication

REACTIONS (5)
  - Pneumonia [Recovered/Resolved]
  - Septic shock [Recovered/Resolved]
  - Hyperthermia [Recovered/Resolved]
  - Acute respiratory failure [Recovered/Resolved]
  - Toxic epidermal necrolysis [Recovered/Resolved]
